FAERS Safety Report 12898162 (Version 2)
Quarter: 2016Q4

REPORT INFORMATION
  Report Type: Not Available
  Country: DE (occurrence: DE)
  Receive Date: 20161031
  Receipt Date: 20161111
  Transmission Date: 20170207
  Serious: Yes (Other)
  Sender: FDA-Public Use
  Company Number: DE-AKORN-42481

PATIENT
  Sex: Male

DRUGS (1)
  1. ZIOPTAN [Suspect]
     Active Substance: TAFLUPROST

REACTIONS (5)
  - Vision blurred [Unknown]
  - Retinal detachment [Unknown]
  - Macular fibrosis [Unknown]
  - Blepharitis [Unknown]
  - Macular oedema [Unknown]
